FAERS Safety Report 21472528 (Version 1)
Quarter: 2022Q4

REPORT INFORMATION
  Report Type: Spontaneous
  Country: US (occurrence: US)
  Receive Date: 20221018
  Receipt Date: 20221018
  Transmission Date: 20230113
  Serious: No
  Sender: FDA-Public Use
  Company Number: US-SANOFI-01312092

PATIENT
  Age: 7 Year
  Sex: Female

DRUGS (2)
  1. DUPIXENT [Suspect]
     Active Substance: DUPILUMAB
     Indication: Dermatitis atopic
     Dosage: 600 MG, 1X
     Route: 058
     Dates: start: 20221005, end: 20221005
  2. DUPIXENT [Suspect]
     Active Substance: DUPILUMAB
     Dosage: 300 MG, Q4W
     Route: 058

REACTIONS (7)
  - Hypersensitivity [Unknown]
  - Myalgia [Unknown]
  - Pyrexia [Recovered/Resolved]
  - Malaise [Unknown]
  - COVID-19 [Unknown]
  - Lethargy [Unknown]
  - Decreased appetite [Unknown]

NARRATIVE: CASE EVENT DATE: 20221006
